FAERS Safety Report 18425953 (Version 1)
Quarter: 2020Q4

REPORT INFORMATION
  Report Type: Spontaneous
  Country: US (occurrence: US)
  Receive Date: 20201026
  Receipt Date: 20201026
  Transmission Date: 20210114
  Serious: No
  Sender: FDA-Public Use
  Company Number: US-GALDERMA-US2020030030

PATIENT
  Age: 56 Year
  Sex: Female

DRUGS (20)
  1. PROACTIV MD DEEP CLEANSING FACE WASH [Concomitant]
     Active Substance: COSMETICS
     Indication: ACNE
  2. PROACTIV GREEN TEA MOISTURIZER [Concomitant]
     Active Substance: COSMETICS
     Indication: PRURITUS
     Route: 061
  3. PROACTIV GREEN TEA MOISTURIZER [Concomitant]
     Active Substance: COSMETICS
     Indication: ACNE
  4. PROACTIV MD BALANCING TONER [Concomitant]
     Active Substance: COSMETICS
     Indication: ACNE
  5. PROACTIV CLEAR ZONE BODY PADS [Concomitant]
     Active Substance: SALICYLIC ACID
     Indication: ACNE
  6. PROACTIV MD ADAPALENE ACNE TREATMENT [Suspect]
     Active Substance: ADAPALENE
     Indication: ACNE
  7. PROACTIV MOISTURE REPAIR [Concomitant]
     Active Substance: COSMETICS
     Indication: PRURITUS
     Route: 061
  8. PROACTIV CLEAR ZONE BODY PADS [Concomitant]
     Active Substance: SALICYLIC ACID
     Indication: PRURITUS
     Route: 061
  9. PROACTIV MD DAILY OIL CONTROL SPF 30 [Suspect]
     Active Substance: AVOBENZONE\OCTISALATE\OCTOCRYLENE
     Indication: PRURITUS
     Route: 061
  10. PROACTIV EYE BRIGHTENING SERUM [Concomitant]
     Active Substance: COSMETICS
     Indication: ACNE
  11. PROACTIV ADVANCED DARK SPOT CORRECTING SERUM [Concomitant]
     Active Substance: HYDROQUINONE
     Indication: PRURITUS
     Route: 061
  12. PROACTIV ADVANCED DARK SPOT CORRECTING SERUM [Concomitant]
     Active Substance: HYDROQUINONE
     Indication: ACNE
  13. PROACTIV MOISTURE REPAIR [Concomitant]
     Active Substance: COSMETICS
     Indication: ACNE
  14. PROACTIV EYE BRIGHTENING SERUM [Concomitant]
     Active Substance: COSMETICS
     Indication: PRURITUS
     Route: 061
  15. PROACTIV MARK CORRECTING PADS [Concomitant]
     Active Substance: GLYCOLIC ACID\SALICYLIC ACID
     Indication: PRURITUS
     Route: 061
  16. PROACTIV MD DAILY OIL CONTROL SPF 30 [Suspect]
     Active Substance: AVOBENZONE\OCTISALATE\OCTOCRYLENE
     Indication: ACNE
  17. PROACTIV MD DEEP CLEANSING FACE WASH [Concomitant]
     Active Substance: COSMETICS
     Indication: PRURITUS
     Route: 061
  18. PROACTIV MARK CORRECTING PADS [Concomitant]
     Active Substance: GLYCOLIC ACID\SALICYLIC ACID
     Indication: ACNE
  19. PROACTIV MD ADAPALENE ACNE TREATMENT [Suspect]
     Active Substance: ADAPALENE
     Indication: PRURITUS
     Dosage: 0.1%
     Route: 061
  20. PROACTIV MD BALANCING TONER [Concomitant]
     Active Substance: COSMETICS
     Indication: PRURITUS
     Route: 061

REACTIONS (2)
  - Skin hyperpigmentation [Unknown]
  - Acne [Unknown]
